FAERS Safety Report 7529884-5 (Version None)
Quarter: 2011Q2

REPORT INFORMATION
  Report Type: 
  Country: None (occurrence: None)
  Receive Date: 20110607
  Receipt Date: 20110530
  Transmission Date: 20111010
  Serious: Yes (Death, Hospitalization, Other)
  Sender: FDA-Public Use
  Company Number: FR-BRISTOL-MYERS SQUIBB COMPANY-15739204

PATIENT
  Age: 64 Year
  Sex: Male

DRUGS (3)
  1. CARBOPLATIN [Suspect]
     Indication: HEAD AND NECK CANCER
     Route: 042
     Dates: start: 20091207, end: 20100121
  2. FLUOROURACIL [Suspect]
     Indication: HEAD AND NECK CANCER
     Dosage: FIRST 4 DAYS OF A 21 DAY CYCLE
     Route: 042
     Dates: start: 20091207, end: 20100121
  3. CETUXIMAB [Suspect]
     Indication: HEAD AND NECK CANCER
     Dosage: 400MG/M2 ON 30-NOV-2009; 250MG/M2 UNTIL 18-JAN-2010
     Route: 042
     Dates: start: 20091130, end: 20100118

REACTIONS (5)
  - RESPIRATORY DISTRESS [None]
  - ASPIRATION [None]
  - DYSPHAGIA [None]
  - DERMATITIS [None]
  - MUCOSAL INFLAMMATION [None]
